FAERS Safety Report 8850622 (Version 1)
Quarter: 2012Q4

REPORT INFORMATION
  Report Type: 
  Country: JP (occurrence: JP)
  Receive Date: 20121019
  Receipt Date: 20121019
  Transmission Date: 20130627
  Serious: Yes (Other)
  Sender: FDA-Public Use
  Company Number: JP-009507513-1207JPN010964

PATIENT
  Age: 73 Year
  Sex: Male

DRUGS (13)
  1. JANUVIA TABLETS 50MG [Suspect]
     Indication: DIABETES MELLITUS
     Dosage: 50 mg, qd
     Route: 048
     Dates: start: 20110630, end: 20120709
  2. COMESGEN [Concomitant]
     Indication: BACK PAIN
     Dosage: 1 DF, bid
     Route: 048
  3. METGLUCO [Concomitant]
     Indication: DIABETES MELLITUS
     Dosage: 1 DF, bid
     Route: 048
  4. SEIBULE [Concomitant]
     Indication: DIABETES MELLITUS
     Dosage: 1 DF, tid
     Route: 048
  5. URIEF [Concomitant]
     Indication: BENIGN PROSTATIC HYPERPLASIA
     Dosage: 1 DF, bid
     Route: 048
  6. MAIBASTAN [Concomitant]
     Indication: DYSLIPIDAEMIA
     Dosage: 1 DF, qd
     Route: 048
  7. ALTAT [Concomitant]
     Indication: GASTRITIS
     Dosage: 1 DF, qd
     Route: 048
  8. MYSLEE [Concomitant]
     Indication: INSOMNIA
     Dosage: 1 DF, qd
     Route: 048
  9. PRORENAL [Concomitant]
     Indication: LUMBAR SPINAL STENOSIS
     Dosage: 1 DF, tid
     Route: 048
     Dates: start: 20120308, end: 20120710
  10. LOXONIN [Concomitant]
     Indication: BACK PAIN
     Dosage: 1 DF, tid
     Route: 048
     Dates: start: 20111115, end: 20120710
  11. LOXONIN [Concomitant]
     Indication: ARTHRALGIA
  12. PREMINENT [Concomitant]
     Indication: HYPERTENSION
     Dosage: 1 DF, qd
     Route: 048
     Dates: start: 20120202, end: 20120709
  13. BLOPRESS [Concomitant]
     Indication: HYPERTENSION
     Dosage: 1 DF, qd
     Route: 048
     Dates: start: 20120710

REACTIONS (1)
  - Amylase increased [Recovering/Resolving]
